FAERS Safety Report 8540694-2 (Version None)
Quarter: 2012Q3

REPORT INFORMATION
  Report Type: 
  Country: None (occurrence: None)
  Receive Date: 20120726
  Receipt Date: 20120717
  Transmission Date: 20120928
  Serious: Yes (Hospitalization)
  Sender: FDA-Public Use
  Company Number: CA-JNJFOC-20120709431

PATIENT
  Sex: Male
  Weight: 80.3 kg

DRUGS (2)
  1. REMICADE [Suspect]
     Dosage: 23RD INFUSION
     Route: 042
  2. REMICADE [Suspect]
     Indication: COLITIS ULCERATIVE
     Route: 042
     Dates: start: 20090101

REACTIONS (1)
  - JOINT DISLOCATION [None]
